FAERS Safety Report 15051446 (Version 1)
Quarter: 2018Q2

REPORT INFORMATION
  Report Type: Spontaneous
  Country: GB (occurrence: GB)
  Receive Date: 20180622
  Receipt Date: 20180622
  Transmission Date: 20180711
  Serious: Yes (Other)
  Sender: FDA-Public Use
  Company Number: GB-PFIZER INC-2018250002

PATIENT
  Age: 75 Year
  Sex: Male
  Weight: 112 kg

DRUGS (9)
  1. LANSOPRAZOLE. [Concomitant]
     Active Substance: LANSOPRAZOLE
     Dosage: 1 DF, 1X/DAY
     Dates: start: 20180514
  2. LATANOPROST. [Suspect]
     Active Substance: LATANOPROST
     Dosage: UNK
     Dates: start: 20180514
  3. METFORMIN [Concomitant]
     Active Substance: METFORMIN HYDROCHLORIDE
     Dosage: 6 DF, 1X/DAY
     Dates: start: 20170928
  4. CETIRIZINE [Concomitant]
     Active Substance: CETIRIZINE HYDROCHLORIDE
     Dosage: 1 DF, 1X/DAY
     Dates: start: 20180514
  5. ACETYLSALICYLIC ACID [Concomitant]
     Active Substance: ASPIRIN
     Dosage: 1 DF, 1X/DAY
     Dates: start: 20170928
  6. CIALIS [Concomitant]
     Active Substance: TADALAFIL
     Dosage: UNK, USE AS DIRECTED
     Dates: start: 20170928
  7. RAMIPRIL. [Concomitant]
     Active Substance: RAMIPRIL
     Dosage: 1 DF, 1X/DAY
     Dates: start: 20170928
  8. PRAVASTATIN. [Concomitant]
     Active Substance: PRAVASTATIN
     Dosage: 1 DF, 1X/DAY,(AT NIGHT)
     Dates: start: 20170928
  9. TAMSULOSIN HYDROCHLORIDE. [Concomitant]
     Active Substance: TAMSULOSIN HYDROCHLORIDE
     Dosage: 1 DF, 1X/DAY
     Dates: start: 20170928

REACTIONS (1)
  - Swelling face [Recovering/Resolving]
